FAERS Safety Report 7882598-4 (Version None)
Quarter: 2011Q4

REPORT INFORMATION
  Report Type: 
  Country: None (occurrence: None)
  Receive Date: 20111101
  Receipt Date: 20110616
  Transmission Date: 20120403
  Serious: No
  Sender: FDA-Public Use
  Company Number: US-AMGEN-USASP2011030928

PATIENT
  Age: 63 Year
  Sex: Female
  Weight: 79.365 kg

DRUGS (11)
  1. EC                                 /00346701/ [Concomitant]
     Dosage: UNK
  2. MOBIC [Concomitant]
     Dosage: UNK
  3. CITRACAL                           /00471001/ [Concomitant]
     Dosage: UNK
  4. ZETIA [Concomitant]
     Dosage: 10 MG, UNK
  5. VIT D [Concomitant]
     Dosage: UNK
  6. CD [Concomitant]
     Dosage: UNK
  7. MSM [Concomitant]
     Dosage: 500 MG, UNK
  8. ENBREL [Suspect]
     Indication: PRODUCT USED FOR UNKNOWN INDICATION
     Dosage: 50 MG, 2 TIMES/WK
     Route: 058
  9. ASPIRIN [Concomitant]
     Dosage: 81 MG, UNK
  10. LISINOPRIL [Concomitant]
     Dosage: 2.5 MG, UNK
  11. DILTIAZEM HCL [Concomitant]
     Dosage: 240 MG, UNK

REACTIONS (1)
  - PARAESTHESIA [None]
